FAERS Safety Report 6805163-6 (Version None)
Quarter: 2010Q2

REPORT INFORMATION
  Report Type: 
  Country: None (occurrence: None)
  Receive Date: 20100628
  Receipt Date: 20070922
  Transmission Date: 20101027
  Serious: No
  Sender: FDA-Public Use
  Company Number: US-PFIZER INC-2007080052

PATIENT
  Sex: Female

DRUGS (1)
  1. GEODON [Suspect]
     Dates: start: 20070921

REACTIONS (4)
  - GAIT DISTURBANCE [None]
  - HYPERSOMNIA [None]
  - NAUSEA [None]
  - SEDATION [None]
